FAERS Safety Report 10485299 (Version 1)
Quarter: 2014Q3

REPORT INFORMATION
  Report Type: Spontaneous
  Country: BG (occurrence: BG)
  Receive Date: 20140930
  Receipt Date: 20140930
  Transmission Date: 20150326
  Serious: Yes (Hospitalization, Other)
  Sender: FDA-Public Use
  Company Number: PHHY2014BG124995

PATIENT
  Age: 1 Year
  Sex: Male

DRUGS (2)
  1. INSULIN [Suspect]
     Active Substance: INSULIN NOS
     Route: 064
  2. METFORMIN [Suspect]
     Active Substance: METFORMIN HYDROCHLORIDE
     Route: 064

REACTIONS (5)
  - Hyperinsulinaemia [Unknown]
  - Hypoglycaemia neonatal [Unknown]
  - Convulsion [Unknown]
  - Premature baby [Unknown]
  - Foetal exposure during pregnancy [Unknown]
